FAERS Safety Report 7265523-9 (Version None)
Quarter: 2011Q1

REPORT INFORMATION
  Report Type: 
  Country: None (occurrence: None)
  Receive Date: 20110131
  Receipt Date: 20110126
  Transmission Date: 20110831
  Serious: Yes (Other)
  Sender: FDA-Public Use
  Company Number: NZ-ROCHE-755619

PATIENT
  Sex: Female

DRUGS (2)
  1. LAPATINIB [Concomitant]
     Indication: BREAST CANCER
  2. HERCEPTIN [Suspect]
     Route: 065

REACTIONS (1)
  - NEOPLASM MALIGNANT [None]
